FAERS Safety Report 10200762 (Version 1)
Quarter: 2014Q2

REPORT INFORMATION
  Report Type: Spontaneous
  Country: RU (occurrence: RU)
  Receive Date: 20140528
  Receipt Date: 20140528
  Transmission Date: 20141212
  Serious: Yes (Other)
  Sender: FDA-Public Use
  Company Number: RU-AMGEN INC.-RUSSP2014039095

PATIENT
  Age: 73 Year
  Sex: Male

DRUGS (9)
  1. FILGRASTIM [Suspect]
     Indication: PRODUCT USED FOR UNKNOWN INDICATION
     Dosage: 300 MRG, UNK
     Route: 065
     Dates: start: 20140313, end: 20140313
  2. FILGRASTIM [Suspect]
     Indication: NEUTROPENIA
     Dosage: UNK
     Route: 065
     Dates: start: 20140307, end: 20140307
  3. OBINUTUZUMAB [Suspect]
     Indication: CHRONIC LYMPHOCYTIC LEUKAEMIA
     Dosage: 1000 MG, ON DAY 1 OF CYCLES 2 TO 6
     Route: 042
     Dates: start: 20140226
  4. BENDAMUSTINE [Concomitant]
     Indication: CHRONIC LYMPHOCYTIC LEUKAEMIA
     Dosage: 70 MG/M2, 1 IN 1 D
     Route: 042
     Dates: start: 20140226, end: 20140226
  5. BENDAMUSTINE [Concomitant]
     Dosage: 70 MG/M2, 1 IN 1 D
     Route: 042
     Dates: start: 20140227
  6. PROPANORM [Concomitant]
     Indication: ATRIAL TACHYCARDIA
     Dosage: 600 MG, UNK
     Route: 048
     Dates: start: 201401
  7. VERAPAMIL [Concomitant]
     Indication: ATRIAL TACHYCARDIA
     Dosage: 80 MG, 2 IN 1 D
     Route: 048
     Dates: start: 201401
  8. DEXAMETASON                        /00016001/ [Concomitant]
     Indication: PROPHYLAXIS
     Dosage: 20 MG, UNK
     Route: 042
     Dates: start: 20140226, end: 20140226
  9. NIFEDIPINE [Concomitant]
     Dosage: 20 MG, SINGLE DOSE
     Route: 048
     Dates: start: 20140226, end: 20140226

REACTIONS (1)
  - Neutropenia [Recovered/Resolved]
